FAERS Safety Report 10023337 (Version 2)
Quarter: 2014Q2

REPORT INFORMATION
  Report Type: Spontaneous
  Country: US (occurrence: US)
  Receive Date: 20140320
  Receipt Date: 20140425
  Transmission Date: 20141212
  Serious: No
  Sender: FDA-Public Use
  Company Number: US-009507513-1403USA007469

PATIENT
  Sex: Female
  Weight: 99.77 kg

DRUGS (1)
  1. DULERA [Suspect]
     Indication: ASTHMA
     Dosage: 2 PUFFS, BID
     Route: 055
     Dates: start: 2014

REACTIONS (3)
  - Dysphonia [Unknown]
  - Throat irritation [Unknown]
  - Blood glucose increased [Recovered/Resolved]
